FAERS Safety Report 7731755-6 (Version None)
Quarter: 2011Q3

REPORT INFORMATION
  Report Type: 
  Country: None (occurrence: None)
  Receive Date: 20110906
  Receipt Date: 20110829
  Transmission Date: 20111222
  Serious: Yes (Other)
  Sender: FDA-Public Use
  Company Number: PHHY2011JP63143

PATIENT
  Age: 14 Year
  Sex: Female

DRUGS (2)
  1. TEGRETOL [Suspect]
     Indication: MANIA
     Dosage: UNK UKN, UNK
     Route: 048
  2. CARBAMAZEPINE [Suspect]

REACTIONS (3)
  - DIZZINESS [None]
  - HEAT ILLNESS [None]
  - HYPOCALCAEMIA [None]
